FAERS Safety Report 20572830 (Version 1)
Quarter: 2022Q1

REPORT INFORMATION
  Report Type: Spontaneous
  Country: US (occurrence: None)
  Receive Date: 20220309
  Receipt Date: 20220309
  Transmission Date: 20220424
  Serious: No
  Sender: FDA-Public Use
  Company Number: None

PATIENT

DRUGS (2)
  1. INTERFERON [Suspect]
     Active Substance: INTERFERON
  2. INTERFERON [Concomitant]
     Active Substance: INTERFERON

REACTIONS (1)
  - Treatment failure [None]
